FAERS Safety Report 9820960 (Version 2)
Quarter: 2014Q1

REPORT INFORMATION
  Report Type: Spontaneous
  Country: US (occurrence: US)
  Receive Date: 20140116
  Receipt Date: 20140225
  Transmission Date: 20141002
  Serious: No
  Sender: FDA-Public Use
  Company Number: US-009507513-1401USA007084

PATIENT
  Sex: Female

DRUGS (8)
  1. OXYTROL FOR WOMEN [Suspect]
     Indication: NOCTURIA
     Dosage: UNK, UNKNOWN
     Route: 062
     Dates: start: 20131223, end: 20140107
  2. OXYTROL FOR WOMEN [Suspect]
     Indication: MICTURITION URGENCY
     Dosage: UNK, UNKNOWN
     Route: 062
     Dates: start: 20131223, end: 20140107
  3. LOSARTAN POTASSIUM [Concomitant]
     Indication: HYPERTENSION
     Dosage: UNK, UNKNOWN
  4. PROPRANOLOL HYDROCHLORIDE [Concomitant]
     Indication: HYPERTENSION
     Dosage: UNK, UNKNOWN
  5. PROPRANOLOL HYDROCHLORIDE [Concomitant]
     Indication: ESSENTIAL TREMOR
  6. TRAZODONE HYDROCHLORIDE [Concomitant]
     Indication: INSOMNIA
     Dosage: UNK, UNKNOWN
  7. LEVOTHYROXINE SODIUM [Concomitant]
     Indication: HYPOTHYROIDISM
     Dosage: UNK, UNKNOWN
  8. ATORVASTATIN [Concomitant]
     Indication: BLOOD CHOLESTEROL INCREASED
     Dosage: UNK, UNKNOWN

REACTIONS (2)
  - Retinal vascular occlusion [Not Recovered/Not Resolved]
  - Blood pressure fluctuation [Unknown]
